FAERS Safety Report 6672106-8 (Version None)
Quarter: 2010Q2

REPORT INFORMATION
  Report Type: 
  Country: None (occurrence: None)
  Receive Date: 20100407
  Receipt Date: 20100407
  Transmission Date: 20101027
  Serious: Yes (Hospitalization)
  Sender: FDA-Public Use
  Company Number: None

PATIENT
  Age: 61 Year
  Sex: Male
  Weight: 115.2136 kg

DRUGS (1)
  1. PRASUGREL 10MG ELI LILLY [Suspect]
     Indication: ACUTE CORONARY SYNDROME
     Dosage: 10MG DAILY PO
     Route: 048
     Dates: start: 20091228, end: 20100405

REACTIONS (4)
  - ANAEMIA [None]
  - FAECES DISCOLOURED [None]
  - GASTROINTESTINAL HAEMORRHAGE [None]
  - HYPOTENSION [None]
